FAERS Safety Report 9803899 (Version 2)
Quarter: 2014Q1

REPORT INFORMATION
  Report Type: Spontaneous
  Country: US (occurrence: None)
  Receive Date: 20140103
  Receipt Date: 20140109
  Transmission Date: 20141002
  Serious: Yes (Hospitalization)
  Sender: FDA-Public Use
  Company Number: NSR_01318_2013

PATIENT
  Age: 14 Year
  Sex: Female

DRUGS (3)
  1. HYDROXYZINE [Suspect]
     Indication: PRODUCT USED FOR UNKNOWN INDICATION
     Dosage: NOT PRESCRIBED DOSE
     Route: 048
  2. BUPROPION [Suspect]
     Indication: PRODUCT USED FOR UNKNOWN INDICATION
     Dosage: NOT THE PRESCRIBED DOSE
     Route: 048
  3. CITALOPRAM [Suspect]
     Indication: PRODUCT USED FOR UNKNOWN INDICATION
     Dosage: NOT THE PRESCRIBED DOSE
     Route: 048

REACTIONS (18)
  - Pancreatitis [None]
  - Overdose [None]
  - Hyperlipidaemia [None]
  - Convulsion [None]
  - Heart rate increased [None]
  - Electrocardiogram QRS complex prolonged [None]
  - Metabolic acidosis [None]
  - Respiratory acidosis [None]
  - Hypotension [None]
  - Nodal rhythm [None]
  - Aspartate aminotransferase increased [None]
  - Blood triglycerides increased [None]
  - Alanine aminotransferase increased [None]
  - Toxicity to various agents [None]
  - Electrocardiogram QT prolonged [None]
  - Blood potassium decreased [None]
  - Conduction disorder [None]
  - Cardiogenic shock [None]
